FAERS Safety Report 5679619-6 (Version None)
Quarter: 2008Q1

REPORT INFORMATION
  Report Type: 
  Country: None (occurrence: None)
  Receive Date: 20080324
  Receipt Date: 20080310
  Transmission Date: 20080703
  Serious: Yes (Other)
  Sender: FDA-Public Use
  Company Number: 310019J08USA

PATIENT
  Sex: Female

DRUGS (3)
  1. GONAL-F [Suspect]
     Indication: INFERTILITY
     Dosage: 225 IU, 2 IN 1 DAYS, SUBCUTANEOUS
     Route: 058
     Dates: start: 20060201, end: 20060201
  2. GONAL-F [Suspect]
     Indication: INFERTILITY
     Dosage: 225 IU, 2 IN 1 DAYS, SUBCUTANEOUS
     Route: 058
     Dates: start: 20050101
  3. GONAL-F [Suspect]
     Indication: INFERTILITY
     Dosage: 225 IU, 2 IN 1 DAYS, SUBCUTANEOUS
     Route: 058
     Dates: start: 20051101

REACTIONS (3)
  - ABORTION [None]
  - FOETAL HEART RATE ABNORMAL [None]
  - TWIN PREGNANCY [None]
